FAERS Safety Report 7009457-3 (Version None)
Quarter: 2010Q3

REPORT INFORMATION
  Report Type: 
  Country: None (occurrence: None)
  Receive Date: 20100923
  Receipt Date: 20100913
  Transmission Date: 20110219
  Serious: Yes (Hospitalization, Other)
  Sender: FDA-Public Use
  Company Number: US-AMGEN-KDL438808

PATIENT
  Age: 65 Year
  Sex: Male
  Weight: 63.1 kg

DRUGS (3)
  1. PROCRIT [Suspect]
     Indication: RENAL FAILURE CHRONIC
     Dates: start: 20020101, end: 20020101
  2. TUMS [Concomitant]
  3. SODIUM BICARBONATE [Concomitant]

REACTIONS (2)
  - CONVULSION [None]
  - HIP FRACTURE [None]
